FAERS Safety Report 17750961 (Version 1)
Quarter: 2020Q2

REPORT INFORMATION
  Report Type: Spontaneous
  Country: FR (occurrence: FR)
  Receive Date: 20200506
  Receipt Date: 20200506
  Transmission Date: 20200714
  Serious: Yes (Other)
  Sender: FDA-Public Use
  Company Number: NVSC2020FR120733

PATIENT
  Age: 41 Year
  Sex: Female
  Weight: 62 kg

DRUGS (1)
  1. AMOXICILLINE SANDOZ 500 MG, GELULE [Suspect]
     Active Substance: AMOXICILLIN
     Indication: TONSILLITIS
     Dosage: 4 DF, QD
     Route: 048
     Dates: start: 20200116, end: 20200118

REACTIONS (5)
  - Product substitution issue [Recovered/Resolved]
  - Skin exfoliation [Recovering/Resolving]
  - Angioedema [Recovering/Resolving]
  - Rash [Recovering/Resolving]
  - Dyspnoea [Recovering/Resolving]

NARRATIVE: CASE EVENT DATE: 20200117
